FAERS Safety Report 5950290-9 (Version None)
Quarter: 2008Q4

REPORT INFORMATION
  Report Type: 
  Country: None (occurrence: None)
  Receive Date: 20081022
  Receipt Date: 20080707
  Transmission Date: 20090506
  Serious: No
  Sender: FDA-Public Use
  Company Number: ALL1-2008-01951

PATIENT

DRUGS (1)
  1. VYVANSE [Suspect]
     Dosage: 1X/DAY:QD, ORAL
     Route: 048
     Dates: start: 20080101

REACTIONS (3)
  - AMPHETAMINES POSITIVE [None]
  - VISION BLURRED [None]
  - VISUAL IMPAIRMENT [None]
